FAERS Safety Report 14336770 (Version 3)
Quarter: 2018Q2

REPORT INFORMATION
  Report Type: Spontaneous
  Country: ES (occurrence: ES)
  Receive Date: 20171229
  Receipt Date: 20180507
  Transmission Date: 20180711
  Serious: Yes (Life-Threatening, Other)
  Sender: FDA-Public Use
  Company Number: ES-AUROBINDO-AUR-APL-2017-47717

PATIENT
  Age: 42 Year
  Sex: Female

DRUGS (26)
  1. TOPIRAMATE. [Suspect]
     Active Substance: TOPIRAMATE
     Indication: PETIT MAL EPILEPSY
     Dosage: 400 MG PER DAY
     Route: 065
  2. TOPIRAMATE. [Suspect]
     Active Substance: TOPIRAMATE
     Dosage: 400 MG PER DAY ()
  3. TOPIRAMATE. [Suspect]
     Active Substance: TOPIRAMATE
     Indication: GENERALISED TONIC-CLONIC SEIZURE
     Dosage: 400 MG, DAILY
  4. ZONISAMIDE. [Suspect]
     Active Substance: ZONISAMIDE
     Dosage: 500 MG PER DAY ()
  5. CLOBAZAM [Concomitant]
     Active Substance: CLOBAZAM
     Indication: PETIT MAL EPILEPSY
     Dosage: 30 MG, DAILY
  6. CLOBAZAM [Concomitant]
     Active Substance: CLOBAZAM
     Dosage: UNK
  7. ETHOSUXIMIDE. [Concomitant]
     Active Substance: ETHOSUXIMIDE
     Indication: GENERALISED TONIC-CLONIC SEIZURE
     Dosage: 1000 MG, DAILY
  8. TOPIRAMATE. [Suspect]
     Active Substance: TOPIRAMATE
     Indication: GENERALISED TONIC-CLONIC SEIZURE
     Dosage: UNK ()
  9. PROGESTERONE. [Suspect]
     Active Substance: PROGESTERONE
     Indication: PETIT MAL EPILEPSY
     Dosage: 100 MG, 3X/DAY (TID) DURING THE SECOND HALF OF THE MENSTRUAL CYCLE
     Route: 065
  10. ZONISAMIDE. [Suspect]
     Active Substance: ZONISAMIDE
     Indication: GENERALISED TONIC-CLONIC SEIZURE
     Dosage: 500 MG PER DAY ()
     Route: 065
  11. ZONISAMIDE. [Suspect]
     Active Substance: ZONISAMIDE
     Indication: PETIT MAL EPILEPSY
     Dosage: 500 MG, DAILY
  12. CLOBAZAM [Concomitant]
     Active Substance: CLOBAZAM
     Indication: GENERALISED TONIC-CLONIC SEIZURE
     Dosage: 30 MG PER DAY ()
     Route: 065
  13. PROGESTERONE. [Suspect]
     Active Substance: PROGESTERONE
     Indication: GENERALISED TONIC-CLONIC SEIZURE
     Dosage: 100 MG, 3X/DAY (TID) DURING THE SECOND HALF OF THE MENSTRUAL CYCLE
  14. PROGESTERONE. [Suspect]
     Active Substance: PROGESTERONE
     Dosage: 100 MG, 3X/DAY (TID) DURING THE SECOND HALF OF THE MENSTRUAL CYCLE
  15. LEVETIRACETAM. [Suspect]
     Active Substance: LEVETIRACETAM
     Indication: GENERALISED TONIC-CLONIC SEIZURE
  16. LAMOTRIGINE. [Concomitant]
     Active Substance: LAMOTRIGINE
     Indication: GENERALISED TONIC-CLONIC SEIZURE
     Dosage: 100 MG PER DAY ()
     Route: 065
  17. CLOBAZAM [Concomitant]
     Active Substance: CLOBAZAM
     Dosage: UNK
     Route: 065
  18. ETHOSUXIMIDE. [Concomitant]
     Active Substance: ETHOSUXIMIDE
     Indication: PETIT MAL EPILEPSY
     Dosage: UNK
     Route: 065
  19. LEVETIRACETAM. [Suspect]
     Active Substance: LEVETIRACETAM
     Indication: PETIT MAL EPILEPSY
     Dosage: 1500 MG PER DAY
  20. LEVETIRACETAM. [Suspect]
     Active Substance: LEVETIRACETAM
     Indication: GENERALISED TONIC-CLONIC SEIZURE
     Dosage: UNK ()
  21. PROGESTERONE. [Suspect]
     Active Substance: PROGESTERONE
     Dosage: 100 MG, CYCLIC (100 MG/8 HOURS DURING THE SECOND HALF OF THE MENSTRUAL CYCLE) ; CYCLICAL
  22. VALPROIC ACID. [Concomitant]
     Active Substance: VALPROIC ACID
     Indication: PETIT MAL EPILEPSY
     Dosage: 1500 MG PER DAY
     Route: 065
  23. VALPROIC ACID. [Concomitant]
     Active Substance: VALPROIC ACID
     Indication: GENERALISED TONIC-CLONIC SEIZURE
     Dosage: 1000 MG PER DAY ()
  24. ZONISAMIDE. [Suspect]
     Active Substance: ZONISAMIDE
     Dosage: UNK ()
  25. LAMOTRIGINE. [Concomitant]
     Active Substance: LAMOTRIGINE
     Indication: PETIT MAL EPILEPSY
     Dosage: UNK (INCREASED TO 150 MG PER DAY) ()
  26. CLOBAZAM [Concomitant]
     Active Substance: CLOBAZAM
     Dosage: 30 MG PER DAY ()

REACTIONS (3)
  - Depressed mood [Unknown]
  - Multiple-drug resistance [Unknown]
  - Suicidal behaviour [Unknown]
